FAERS Safety Report 7287950 (Version 3)
Quarter: 2013Q1

REPORT INFORMATION
  Report Type: Spontaneous
  Country: US (occurrence: US)
  Receive Date: 20100222
  Receipt Date: 20130219
  Transmission Date: 20140127
  Serious: No
  Sender: FDA-Public Use
  Company Number: US-BRISTOL-MYERS SQUIBB COMPANY-14436588

PATIENT
  Age: 59 Year
  Sex: Female

DRUGS (4)
  1. ORENCIA [Suspect]
     Indication: RHEUMATOID ARTHRITIS
     Dosage: LAST INF 19MAR12,28NOV12?STOPPED IV AND RESTARTED IN MAY12
     Route: 042
     Dates: start: 2008
  2. ABATACEPT SUBQ INJECTION 125MG/ML [Suspect]
     Indication: RHEUMATOID ARTHRITIS
     Route: 058
     Dates: start: 201202, end: 201205
  3. METHOTREXATE [Suspect]
     Route: 048
  4. CELEBREX [Concomitant]
     Dosage: 1 TO 2 TABS EVERY OTHER DAY DEPENDING ON SYMPTOMS.

REACTIONS (4)
  - Joint swelling [Unknown]
  - Cough [Unknown]
  - Upper respiratory tract congestion [Unknown]
  - Drug ineffective [Unknown]
